FAERS Safety Report 4775191-3 (Version None)
Quarter: 2005Q3

REPORT INFORMATION
  Report Type: 
  Country: None (occurrence: None)
  Receive Date: 20050921
  Receipt Date: 20050907
  Transmission Date: 20060218
  Serious: Yes (Hospitalization)
  Sender: FDA-Public Use
  Company Number: MY-MERCK-0509MYS00005

PATIENT
  Age: 28 Year
  Sex: Female
  Weight: 50 kg

DRUGS (1)
  1. INVANZ [Suspect]
     Indication: LYMPHADENITIS SUPPURATIVE
     Route: 041
     Dates: start: 20050813, end: 20050813

REACTIONS (4)
  - CONJUNCTIVAL DISORDER [None]
  - EYELID OEDEMA [None]
  - PARAESTHESIA [None]
  - PARAESTHESIA ORAL [None]
